FAERS Safety Report 6306931-X (Version None)
Quarter: 2009Q3

REPORT INFORMATION
  Report Type: 
  Country: None (occurrence: None)
  Receive Date: 20090811
  Receipt Date: 20090811
  Transmission Date: 20100115
  Serious: Yes (Other)
  Sender: FDA-Public Use
  Company Number: None

PATIENT
  Age: 43 Year
  Sex: Male
  Weight: 83.4619 kg

DRUGS (1)
  1. GABAPENTIN [Suspect]
     Indication: PAIN
     Dates: start: 20090721, end: 20090810

REACTIONS (10)
  - BALANCE DISORDER [None]
  - DIZZINESS [None]
  - DRY MOUTH [None]
  - DYSPNOEA [None]
  - FATIGUE [None]
  - IRRITABILITY [None]
  - NO THERAPEUTIC RESPONSE [None]
  - PRURITUS [None]
  - SUICIDAL IDEATION [None]
  - VISION BLURRED [None]
